FAERS Safety Report 13418707 (Version 1)
Quarter: 2017Q2

REPORT INFORMATION
  Report Type: Spontaneous
  Country: US (occurrence: US)
  Receive Date: 20170406
  Receipt Date: 20170406
  Transmission Date: 20170830
  Serious: Yes (Hospitalization)
  Sender: FDA-Public Use
  Company Number: US-IMPAX LABORATORIES, INC-2017-IPXL-00813

PATIENT
  Age: 37 Year
  Sex: Male

DRUGS (1)
  1. DIVALPROEX SODIUM ER [Suspect]
     Active Substance: DIVALPROEX SODIUM
     Indication: INTENTIONAL OVERDOSE
     Dosage: 50 TABS OF 500 MG, UNK
     Route: 065

REACTIONS (6)
  - Pancreatic pseudocyst [Unknown]
  - Intentional overdose [Unknown]
  - Ammonia increased [Recovered/Resolved]
  - Pancreatitis [Unknown]
  - Toxicity to various agents [Unknown]
  - Mental status changes [Unknown]
